FAERS Safety Report 24001714 (Version 1)
Quarter: 2024Q2

REPORT INFORMATION
  Report Type: Report from Study
  Country: CO (occurrence: CO)
  Receive Date: 20240621
  Receipt Date: 20240621
  Transmission Date: 20240716
  Serious: Yes (Other)
  Sender: FDA-Public Use
  Company Number: CO-ABBVIE-5810214

PATIENT
  Age: 27 Year
  Sex: Female
  Weight: 47 kg

DRUGS (5)
  1. SKYRIZI [Suspect]
     Active Substance: RISANKIZUMAB-RZAA
     Indication: Psoriasis
     Dosage: FORM STRENGTH: 150 MILLIGRAM
     Route: 058
     Dates: start: 20221227, end: 20240306
  2. DICLOFENAC [Suspect]
     Active Substance: DICLOFENAC
     Indication: Pain
     Dosage: SINGLE DOSE? FORM STRENGTH: 300 MIILIGRAM
     Route: 030
     Dates: start: 202404, end: 202404
  3. CELECOXIB [Concomitant]
     Active Substance: CELECOXIB
     Indication: Pain
     Dosage: LAST ADMIN DATE-2024
     Route: 048
     Dates: start: 202404
  4. ALLERZITINA [Concomitant]
     Indication: Hypersensitivity
     Dosage: LAST ADMIN DATE-2024
     Route: 048
     Dates: start: 202404
  5. ACETAMINOPHEN\TRAMADOL [Concomitant]
     Active Substance: ACETAMINOPHEN\TRAMADOL
     Indication: Pain
     Dosage: LAST ADMIN DATE-2024
     Route: 048
     Dates: start: 202404

REACTIONS (10)
  - Neoplasm [Not Recovered/Not Resolved]
  - Inflammation [Recovered/Resolved]
  - Fatigue [Not Recovered/Not Resolved]
  - Synovial sarcoma [Not Recovered/Not Resolved]
  - Pain [Recovering/Resolving]
  - Pain [Not Recovered/Not Resolved]
  - Drug hypersensitivity [Recovered/Resolved]
  - Extraskeletal ossification [Unknown]
  - Inflammation [Recovering/Resolving]
  - Unevaluable event [Not Recovered/Not Resolved]

NARRATIVE: CASE EVENT DATE: 20240301
